FAERS Safety Report 8342289-2 (Version None)
Quarter: 2012Q2

REPORT INFORMATION
  Report Type: 
  Country: None (occurrence: None)
  Receive Date: 20120507
  Receipt Date: 20120427
  Transmission Date: 20120825
  Serious: Yes (Other)
  Sender: FDA-Public Use
  Company Number: JP-MERCK-1205USA00450

PATIENT
  Age: 62 Year
  Sex: Male

DRUGS (4)
  1. JANUVIA [Suspect]
     Indication: DIABETES MELLITUS
     Route: 048
     Dates: start: 20111212, end: 20120424
  2. LANTUS [Suspect]
     Indication: DIABETES MELLITUS
     Route: 058
  3. DIOVAN [Concomitant]
     Indication: HYPERTENSION
     Route: 048
  4. PEPCID [Concomitant]
     Route: 065

REACTIONS (3)
  - HYPOGLYCAEMIA [None]
  - LOSS OF CONSCIOUSNESS [None]
  - CHRONIC MYELOID LEUKAEMIA [None]
